FAERS Safety Report 24790650 (Version 1)
Quarter: 2024Q4

REPORT INFORMATION
  Report Type: Spontaneous
  Country: US (occurrence: US)
  Receive Date: 20241230
  Receipt Date: 20241230
  Transmission Date: 20250114
  Serious: No
  Sender: MERCK
  Company Number: US-009507513-2412USA008993

PATIENT
  Age: 53 Year
  Sex: Female

DRUGS (5)
  1. WINREVAIR [Suspect]
     Active Substance: SOTATERCEPT-CSRK
     Indication: Product used for unknown indication
     Dosage: UNK
     Dates: start: 20241115
  2. REMODULIN [Suspect]
     Active Substance: TREPROSTINIL
     Indication: Pulmonary arterial hypertension
     Dosage: UNK
     Route: 058
     Dates: start: 202211
  3. REMODULIN [Suspect]
     Active Substance: TREPROSTINIL
     Dosage: 0.094 MICROGRAM PER KILOGRAM CONTINUING DOSE
     Route: 058
     Dates: start: 20241115, end: 202412
  4. REMODULIN [Suspect]
     Active Substance: TREPROSTINIL
     Dosage: 0.096 MICROGRAM PER KILOGRAM, AT PUMP RATE OF 54MCL/HR, CONTINUING
     Route: 058
     Dates: start: 202412
  5. TADALAFIL [Concomitant]
     Active Substance: TADALAFIL
     Dosage: UNK

REACTIONS (4)
  - Illness [Recovering/Resolving]
  - Vomiting [Recovering/Resolving]
  - Fatigue [Recovering/Resolving]
  - Diarrhoea [Recovering/Resolving]

NARRATIVE: CASE EVENT DATE: 20241115
